FAERS Safety Report 12153900 (Version 1)
Quarter: 2016Q1

REPORT INFORMATION
  Report Type: Spontaneous
  Country: JP (occurrence: JP)
  Receive Date: 20160307
  Receipt Date: 20160307
  Transmission Date: 20160526
  Serious: Yes (Death)
  Sender: FDA-Public Use
  Company Number: JP-ROCHE-1719484

PATIENT
  Age: 79 Year
  Sex: Female
  Weight: 72 kg

DRUGS (9)
  1. IRBETAN [Concomitant]
     Active Substance: IRBESARTAN
     Route: 048
  2. ALDACTONE A [Concomitant]
     Active Substance: SPIRONOLACTONE
     Route: 048
     Dates: start: 20151117, end: 20151119
  3. SOVALDI [Suspect]
     Active Substance: SOFOSBUVIR
     Indication: CHRONIC HEPATITIS C
     Dosage: ON 19/NOV/2015 RECEIVED LAST DOSE
     Route: 048
     Dates: start: 20151106
  4. ALDACTONE A [Concomitant]
     Active Substance: SPIRONOLACTONE
     Route: 048
     Dates: start: 20151107
  5. LIVACT [Concomitant]
     Active Substance: AMINO ACIDS
     Route: 065
     Dates: start: 20150901
  6. AZOSEMIDE [Concomitant]
     Active Substance: AZOSEMIDE
  7. DIART [Concomitant]
     Active Substance: AZOSEMIDE
     Route: 065
     Dates: start: 2012, end: 20151106
  8. EBRANTIL [Concomitant]
     Active Substance: URAPIDIL
     Route: 048
  9. COPEGUS [Suspect]
     Active Substance: RIBAVIRIN
     Indication: CHRONIC HEPATITIS C
     Dosage: ON 19/NOV/2015 RECEIVED LAST DOSE
     Route: 048
     Dates: start: 20151106

REACTIONS (3)
  - Atrial fibrillation [Fatal]
  - Pyrexia [Fatal]
  - Cardiac failure [Fatal]

NARRATIVE: CASE EVENT DATE: 20151109
